FAERS Safety Report 16811983 (Version 1)
Quarter: 2019Q3

REPORT INFORMATION
  Report Type: Report from Study
  Country: JP (occurrence: JP)
  Receive Date: 20190916
  Receipt Date: 20190916
  Transmission Date: 20191005
  Serious: Yes (Hospitalization)
  Sender: FDA-Public Use
  Company Number: JP-JNJFOC-20190915061

PATIENT
  Age: 53 Year
  Sex: Male

DRUGS (20)
  1. REMICADE [Suspect]
     Active Substance: INFLIXIMAB
     Route: 042
     Dates: start: 20181126, end: 20181126
  2. CORTRIL [Concomitant]
     Active Substance: HYDROCORTISONE
     Indication: BEHCET^S SYNDROME
     Route: 048
  3. WARFARIN POTASSIUM [Concomitant]
     Active Substance: WARFARIN POTASSIUM
     Indication: BEHCET^S SYNDROME
  4. TAKECAB [Concomitant]
     Active Substance: VONOPRAZAN FUMURATE
     Indication: PROPHYLAXIS
     Route: 048
  5. AZANIN [Concomitant]
     Active Substance: AZATHIOPRINE
     Indication: BEHCET^S SYNDROME
     Route: 048
  6. REMICADE [Suspect]
     Active Substance: INFLIXIMAB
     Route: 042
     Dates: start: 20190107, end: 20190107
  7. PREDNISOLONE. [Suspect]
     Active Substance: PREDNISOLONE
     Route: 048
     Dates: start: 20181001, end: 20190217
  8. PREDNISOLONE. [Suspect]
     Active Substance: PREDNISOLONE
     Route: 048
     Dates: start: 20180820, end: 20180930
  9. CORTRIL [Concomitant]
     Active Substance: HYDROCORTISONE
     Indication: BEHCET^S SYNDROME
  10. REMICADE [Suspect]
     Active Substance: INFLIXIMAB
     Indication: BEHCET^S SYNDROME
     Route: 042
     Dates: start: 20180705, end: 20180910
  11. REMICADE [Suspect]
     Active Substance: INFLIXIMAB
     Indication: BEHCET^S SYNDROME
     Route: 042
     Dates: start: 20181001, end: 20181001
  12. PREDNISOLONE. [Suspect]
     Active Substance: PREDNISOLONE
     Indication: BEHCET^S SYNDROME
     Route: 048
     Dates: start: 20180705, end: 20180716
  13. COLCHICINE. [Concomitant]
     Active Substance: COLCHICINE
     Indication: BEHCET^S SYNDROME
     Route: 048
     Dates: end: 20190609
  14. AZANIN [Concomitant]
     Active Substance: AZATHIOPRINE
     Indication: BEHCET^S SYNDROME
  15. LIPITOR [Concomitant]
     Active Substance: ATORVASTATIN CALCIUM
     Indication: DYSLIPIDAEMIA
     Route: 048
  16. WARFARIN POTASSIUM [Concomitant]
     Active Substance: WARFARIN POTASSIUM
     Indication: BEHCET^S SYNDROME
     Route: 048
  17. PREDNISOLONE. [Suspect]
     Active Substance: PREDNISOLONE
     Indication: BEHCET^S SYNDROME
     Route: 048
     Dates: start: 20180717, end: 20180819
  18. PREDNISOLONE. [Suspect]
     Active Substance: PREDNISOLONE
     Route: 048
     Dates: start: 20190218
  19. COLCHICINE. [Concomitant]
     Active Substance: COLCHICINE
     Indication: BEHCET^S SYNDROME
     Route: 048
     Dates: start: 20190610
  20. RECALBON                           /00454801/ [Concomitant]
     Active Substance: ALFACALCIDOL
     Indication: PROPHYLAXIS
     Route: 048

REACTIONS (2)
  - Pneumonia [Recovered/Resolved]
  - Meningitis cryptococcal [Recovering/Resolving]

NARRATIVE: CASE EVENT DATE: 20181031
